FAERS Safety Report 6509763-2 (Version None)
Quarter: 2009Q4

REPORT INFORMATION
  Report Type: 
  Country: None (occurrence: None)
  Receive Date: 20091221
  Receipt Date: 20091221
  Transmission Date: 20100525
  Serious: Yes (Death, Life-Threatening, Hospitalization, Other)
  Sender: FDA-Public Use
  Company Number: None

PATIENT
  Sex: Male
  Weight: 11.3 kg

DRUGS (11)
  1. RITUXIMAB 10 MG/ML GENETECH [Suspect]
     Indication: OPSOCLONUS MYOCLONUS
     Dosage: 750 MG/M2 2X, 2 WKS APART IV DRIP
     Route: 041
     Dates: start: 20081226
  2. RITUXIMAB 10 MG/ML GENETECH [Suspect]
     Indication: OPSOCLONUS MYOCLONUS
     Dosage: 750 MG/M2 2X, 2 WKS APART IV DRIP
     Route: 041
     Dates: start: 20090109
  3. ACTHAR GEL-SYNTHETIC [Suspect]
     Dosage: 25 IU/M2 QOD IM
     Route: 030
     Dates: start: 20090813
  4. CLONIDINE [Concomitant]
  5. AMLODIPINE [Concomitant]
  6. CALCIUM CARBONATE [Concomitant]
  7. CAPTOPRIL [Concomitant]
  8. NIFEDIPINE [Concomitant]
  9. IMMUNE GLOBULIN INTRAVENOUS (HUMAN) [Concomitant]
  10. BACTRIM [Concomitant]
  11. PENTAMIDINE ISETHIONATE [Concomitant]

REACTIONS (10)
  - ACUTE RESPIRATORY DISTRESS SYNDROME [None]
  - APLASTIC ANAEMIA [None]
  - CEREBRAL HAEMORRHAGE [None]
  - CONVULSION [None]
  - HYDROCEPHALUS [None]
  - HYPERTENSION [None]
  - MULTI-ORGAN FAILURE [None]
  - RENAL FAILURE ACUTE [None]
  - SEPSIS [None]
  - SEPTIC SHOCK [None]
